FAERS Safety Report 20924938 (Version 1)
Quarter: 2022Q2

REPORT INFORMATION
  Report Type: Spontaneous
  Country: BE (occurrence: BE)
  Receive Date: 20220607
  Receipt Date: 20220607
  Transmission Date: 20220721
  Serious: Yes (Other)
  Sender: FDA-Public Use
  Company Number: None

PATIENT
  Age: 30 Year
  Sex: Female
  Weight: 47 kg

DRUGS (3)
  1. AMLODIPINE BESYLATE [Suspect]
     Active Substance: AMLODIPINE BESYLATE
     Indication: Hypertension
     Dosage: 1 DF, AS NEEDED (ONLY ONE TABLET IF BLOOD PRESSURE 140/100, FIRST TIME TAKING THIS MEDICINE)
     Route: 048
     Dates: start: 20220514, end: 20220514
  2. LISINOPRIL [Concomitant]
     Active Substance: LISINOPRIL
     Dosage: 20 MG (AT 3 PM)
  3. TOLVAPTAN [Concomitant]
     Active Substance: TOLVAPTAN
     Dosage: 90 MG (AT 8 AM)

REACTIONS (15)
  - Choking [Recovering/Resolving]
  - Nocturia [Recovering/Resolving]
  - Hypertension [Recovering/Resolving]
  - Photophobia [Recovering/Resolving]
  - Hyperhidrosis [Recovering/Resolving]
  - Palpitations [Recovering/Resolving]
  - Anxiety [Recovering/Resolving]
  - Pollakiuria [Recovering/Resolving]
  - Confusional state [Recovering/Resolving]
  - Micturition disorder [Recovering/Resolving]
  - Agitation [Recovering/Resolving]
  - Tachycardia [Recovering/Resolving]
  - Blepharospasm [Recovering/Resolving]
  - Hot flush [Recovering/Resolving]
  - Abnormal sensation in eye [Recovering/Resolving]

NARRATIVE: CASE EVENT DATE: 20220514
